FAERS Safety Report 7686434-0 (Version None)
Quarter: 2011Q3

REPORT INFORMATION
  Report Type: 
  Country: None (occurrence: None)
  Receive Date: 20110816
  Receipt Date: 20110811
  Transmission Date: 20111222
  Serious: Yes (Death)
  Sender: FDA-Public Use
  Company Number: JP-SANOFI-AVENTIS-2011SA050614

PATIENT
  Age: 63 Year
  Sex: Male

DRUGS (3)
  1. BEVACIZUMAB [Suspect]
     Indication: COLON CANCER
     Route: 041
     Dates: start: 20110427, end: 20110608
  2. OXALIPLATIN [Suspect]
     Indication: COLON CANCER
     Route: 041
     Dates: start: 20110427, end: 20110722
  3. CAPECITABINE [Suspect]
     Indication: COLON CANCER
     Dosage: FREQUENCY: BID
     Route: 048
     Dates: start: 20110427, end: 20110722

REACTIONS (1)
  - SUDDEN DEATH [None]
